FAERS Safety Report 20219758 (Version 1)
Quarter: 2021Q4

REPORT INFORMATION
  Report Type: Spontaneous
  Country: US (occurrence: None)
  Receive Date: 20211222
  Receipt Date: 20211222
  Transmission Date: 20220304
  Serious: Yes (Hospitalization)
  Sender: FDA-Public Use
  Company Number: None

PATIENT
  Age: 35 Month
  Sex: Female
  Weight: 13.7 kg

DRUGS (2)
  1. DEVICE [Suspect]
     Active Substance: DEVICE
  2. CISPLATIN [Suspect]
     Active Substance: CISPLATIN

REACTIONS (2)
  - Incorrect drug administration rate [None]
  - Device infusion issue [None]

NARRATIVE: CASE EVENT DATE: 20211221
